FAERS Safety Report 14272042 (Version 3)
Quarter: 2018Q2

REPORT INFORMATION
  Report Type: Report from Study
  Country: None (occurrence: US)
  Receive Date: 20171212
  Receipt Date: 20180522
  Transmission Date: 20180711
  Serious: Yes (Hospitalization, Other)
  Sender: FDA-Public Use
  Company Number: US-ABBVIE-17K-163-2176583-00

PATIENT
  Age: 65 Year
  Sex: Male
  Weight: 97.61 kg

DRUGS (3)
  1. HUMIRA [Suspect]
     Active Substance: ADALIMUMAB
     Route: 058
     Dates: start: 2017
  2. HUMIRA [Suspect]
     Active Substance: ADALIMUMAB
     Indication: COLITIS ULCERATIVE
     Dosage: LOADING DOSE
     Route: 058
     Dates: start: 2017, end: 2017
  3. HUMIRA [Suspect]
     Active Substance: ADALIMUMAB
     Indication: CROHN^S DISEASE
     Dosage: LOADING DOSE
     Route: 058
     Dates: start: 201704, end: 201704

REACTIONS (12)
  - Fall [Recovering/Resolving]
  - Abdominal pain [Recovered/Resolved]
  - Procedural pain [Unknown]
  - Dizziness [Unknown]
  - Pollakiuria [Unknown]
  - Ammonia decreased [Unknown]
  - Diabetic coma [Recovered/Resolved]
  - Blood glucose increased [Unknown]
  - Hepatic steatosis [Unknown]
  - Dyspnoea [Unknown]
  - Liver disorder [Unknown]
  - Pleural effusion [Unknown]

NARRATIVE: CASE EVENT DATE: 2017
